FAERS Safety Report 22117096 (Version 2)
Quarter: 2023Q2

REPORT INFORMATION
  Report Type: Spontaneous
  Country: US (occurrence: US)
  Receive Date: 20230320
  Receipt Date: 20230511
  Transmission Date: 20230722
  Serious: Yes (Other)
  Sender: FDA-Public Use
  Company Number: US-PFIZER INC-202300114899

PATIENT
  Age: 72 Year
  Sex: Female
  Weight: 54.43 kg

DRUGS (3)
  1. PREMARIN [Suspect]
     Active Substance: ESTROGENS, CONJUGATED
     Indication: Hysterectomy
     Dosage: UNK (1.5%, 1.5)
     Dates: start: 1987
  2. PREMARIN [Suspect]
     Active Substance: ESTROGENS, CONJUGATED
     Dosage: 0.9 MG, 1X/DAY
     Route: 048
     Dates: start: 1987
  3. POLYMYXIN B SULFATE\TRIMETHOPRIM [Suspect]
     Active Substance: POLYMYXIN B SULFATE\TRIMETHOPRIM
     Indication: Conjunctivitis bacterial
     Dosage: UNK UNK, EVERY 4 HRS
     Route: 047
     Dates: start: 20230223

REACTIONS (9)
  - Blindness [Recovering/Resolving]
  - Urticaria [Unknown]
  - Eye swelling [Recovering/Resolving]
  - Visual impairment [Recovering/Resolving]
  - Peripheral swelling [Unknown]
  - Eye irritation [Recovering/Resolving]
  - Pruritus [Unknown]
  - Eye pruritus [Recovering/Resolving]
  - Hypersensitivity [Unknown]

NARRATIVE: CASE EVENT DATE: 20230101
